FAERS Safety Report 8888807 (Version 1)
Quarter: 2012Q4

REPORT INFORMATION
  Report Type: 
  Country: HR (occurrence: HR)
  Receive Date: 20121106
  Receipt Date: 20121106
  Transmission Date: 20130627
  Serious: Yes (Other)
  Sender: FDA-Public Use
  Company Number: PHHY2012HR099511

PATIENT
  Age: 63 Year
  Sex: Female

DRUGS (2)
  1. METHYLPREDNISOLONE [Suspect]
     Indication: ANTIPHOSPHOLIPID SYNDROME
     Dosage: 1 mg/kg, UNK
     Route: 042
  2. DALTEPARIN [Concomitant]

REACTIONS (4)
  - Anaemia [Recovered/Resolved]
  - Thrombocytopenia [Recovered/Resolved]
  - Thrombophlebitis [Recovered/Resolved]
  - Cellulitis [Recovered/Resolved]
